FAERS Safety Report 15188633 (Version 2)
Quarter: 2018Q3

REPORT INFORMATION
  Report Type: Spontaneous
  Country: US (occurrence: US)
  Receive Date: 20180724
  Receipt Date: 20180807
  Transmission Date: 20181010
  Serious: No
  Sender: FDA-Public Use
  Company Number: US-PFIZER INC-2018268147

PATIENT
  Age: 59 Year
  Sex: Male

DRUGS (2)
  1. EMBEDA [Suspect]
     Active Substance: MORPHINE SULFATE\NALTREXONE HYDROCHLORIDE
     Dosage: UNK, 1X/DAY
  2. OXYCODONE [Suspect]
     Active Substance: OXYCODONE
     Dosage: 30 MG, 3X/DAY

REACTIONS (2)
  - Vomiting [Unknown]
  - Drug ineffective [Unknown]
